FAERS Safety Report 8200857-2 (Version None)
Quarter: 2012Q1

REPORT INFORMATION
  Report Type: 
  Country: None (occurrence: None)
  Receive Date: 20120312
  Receipt Date: 20110509
  Transmission Date: 20120608
  Serious: No
  Sender: FDA-Public Use
  Company Number: US-ABBOTT-11P-163-0725003-00

PATIENT
  Age: 50 Year
  Sex: Female
  Weight: 57.204 kg

DRUGS (4)
  1. LUPRON DEPOT [Suspect]
     Indication: UTERINE LEIOMYOMA
     Dates: start: 20010101
  2. SEVERAL OTHER MEDICATIONS [Concomitant]
     Indication: PRODUCT USED FOR UNKNOWN INDICATION
  3. RILUTEK [Concomitant]
     Indication: AMYOTROPHIC LATERAL SCLEROSIS
  4. LUPRON DEPOT [Suspect]
     Indication: UTERINE LEIOMYOMA
     Dates: start: 20110424

REACTIONS (1)
  - VAGINAL HAEMORRHAGE [None]
